FAERS Safety Report 12839551 (Version 2)
Quarter: 2016Q4

REPORT INFORMATION
  Report Type: Spontaneous
  Country: BR (occurrence: BR)
  Receive Date: 20161012
  Receipt Date: 20161017
  Transmission Date: 20170207
  Serious: Yes (Hospitalization, Other)
  Sender: FDA-Public Use
  Company Number: BR-GLAXOSMITHKLINE-BR2016GSK146210

PATIENT
  Sex: Male
  Weight: 45 kg

DRUGS (8)
  1. DIGESAN [Concomitant]
     Active Substance: BROMOPRIDE
     Dosage: 1 UNK, BID
     Dates: start: 201507
  2. PANTOPRAZOLE [Concomitant]
     Active Substance: PANTOPRAZOLE SODIUM
     Dosage: 1 UNK, QD
     Dates: start: 201507
  3. AEROLIN [Concomitant]
     Active Substance: ALBUTEROL
     Dosage: 2 PUFF(S), UNK
     Route: 055
  4. ACETYLCYSTEINE. [Concomitant]
     Active Substance: ACETYLCYSTEINE
     Dosage: 600 MG, UNK
     Route: 048
  5. LUFTAL [Concomitant]
     Active Substance: DIMETHICONE
     Indication: FLATULENCE
     Dosage: 20 UNK, BID
     Route: 048
     Dates: start: 201507
  6. DESOL (COLECALCIFEROL) [Suspect]
     Active Substance: CHOLECALCIFEROL
     Indication: HYPOVITAMINOSIS
     Dosage: 10 UNK, QD
     Route: 048
     Dates: start: 201601
  7. BAMIFIX [Concomitant]
     Active Substance: BAMIFYLLINE HYDROCHLORIDE
     Dosage: 600 MG, QD
     Route: 048
     Dates: start: 2015
  8. SERETIDE [Suspect]
     Active Substance: FLUTICASONE PROPIONATE\SALMETEROL XINAFOATE
     Indication: CHRONIC OBSTRUCTIVE PULMONARY DISEASE
     Dosage: 2 PUFF(S), BID
     Route: 055
     Dates: start: 201601

REACTIONS (3)
  - Respiratory disorder [Unknown]
  - Influenza [Unknown]
  - Pneumonia [Recovered/Resolved]

NARRATIVE: CASE EVENT DATE: 2016
